FAERS Safety Report 18858148 (Version 1)
Quarter: 2021Q1

REPORT INFORMATION
  Report Type: Spontaneous
  Country: US (occurrence: US)
  Receive Date: 20210206
  Receipt Date: 20210206
  Transmission Date: 20210420
  Serious: Yes (Death)
  Sender: FDA-Public Use
  Company Number: None

PATIENT
  Sex: Female
  Weight: 90 kg

DRUGS (1)
  1. KRATOM [Suspect]
     Active Substance: HERBALS\MITRAGYNINE
     Indication: PAIN
     Dosage: ?          QUANTITY:100 OUNCE(S);?
     Route: 048
     Dates: start: 20160101, end: 20180711

REACTIONS (2)
  - Extra dose administered [None]
  - Malaise [None]
